FAERS Safety Report 15836160 (Version 1)
Quarter: 2019Q1

REPORT INFORMATION
  Report Type: Spontaneous
  Country: US (occurrence: US)
  Receive Date: 20190117
  Receipt Date: 20190117
  Transmission Date: 20190417
  Serious: Yes (Death)
  Sender: FDA-Public Use
  Company Number: US-INSYS THERAPEUTICS, INC-INS201901-000278

PATIENT
  Age: 37 Year
  Sex: Female

DRUGS (10)
  1. HEROIN [Suspect]
     Active Substance: DIAMORPHINE
     Route: 051
     Dates: start: 2017
  2. NICOTINE. [Suspect]
     Active Substance: NICOTINE
     Dates: start: 2017
  3. CAFFEINE. [Suspect]
     Active Substance: CAFFEINE
     Dates: start: 2017
  4. FENTANYL. [Suspect]
     Active Substance: FENTANYL
     Indication: PRODUCT USED FOR UNKNOWN INDICATION
     Route: 051
     Dates: start: 2017
  5. FENTANYL. [Suspect]
     Active Substance: FENTANYL
     Dates: start: 2017
  6. HYDROXYZINE [Suspect]
     Active Substance: HYDROXYZINE HYDROCHLORIDE
     Route: 051
     Dates: start: 2017
  7. HYDROXYZINE [Suspect]
     Active Substance: HYDROXYZINE HYDROCHLORIDE
     Dates: start: 2017
  8. CAFFEINE. [Suspect]
     Active Substance: CAFFEINE
     Route: 051
     Dates: start: 2017
  9. NICOTINE. [Suspect]
     Active Substance: NICOTINE
     Route: 051
     Dates: start: 2017
  10. HEROIN [Suspect]
     Active Substance: DIAMORPHINE
     Dates: start: 2017

REACTIONS (2)
  - Incorrect route of product administration [Unknown]
  - Drug abuse [Fatal]

NARRATIVE: CASE EVENT DATE: 2017
